FAERS Safety Report 5519292-0 (Version None)
Quarter: 2007Q4

REPORT INFORMATION
  Report Type: 
  Country: None (occurrence: None)
  Receive Date: 20071116
  Receipt Date: 20061024
  Transmission Date: 20080405
  Serious: Yes (Other)
  Sender: FDA-Public Use
  Company Number: FI-BAYER-200510095BSV

PATIENT
  Age: 51 Year
  Sex: Male
  Weight: 85 kg

DRUGS (13)
  1. VARDENAFIL ONCE DAILY [Suspect]
     Indication: ERECTILE DYSFUNCTION
     Route: 048
     Dates: start: 20050804, end: 20050906
  2. VARDENAFIL ONCE DAILY [Suspect]
     Route: 048
     Dates: start: 20050804, end: 20050906
  3. VARDENAFIL ONCE DAILY [Suspect]
     Route: 048
     Dates: start: 20050907, end: 20050921
  4. VARDENAFIL ONCE DAILY [Suspect]
     Route: 048
     Dates: start: 20050922, end: 20051022
  5. VARDENAFIL ONCE DAILY [Suspect]
     Route: 048
     Dates: start: 20060123
  6. VARDENAFIL ONCE DAILY [Suspect]
     Route: 048
     Dates: start: 20050907, end: 20050921
  7. VARDENAFIL ONCE DAILY [Suspect]
     Route: 048
     Dates: start: 20051103, end: 20060122
  8. VARDENAFIL ONCE DAILY [Suspect]
     Route: 048
     Dates: start: 20050922, end: 20051022
  9. VARDENAFIL ONCE DAILY [Suspect]
     Route: 048
     Dates: start: 20051103, end: 20060122
  10. SERETIDE DISKUS [Concomitant]
     Indication: ASTHMA
     Route: 055
     Dates: start: 20000101
  11. VENTOLIN [Concomitant]
     Indication: ASTHMA
     Route: 065
     Dates: start: 19850101
  12. DIOVAN COMP [Concomitant]
     Indication: HYPERTENSION
     Route: 048
     Dates: start: 19850101
  13. PANACOD [Concomitant]
     Indication: PROCEDURAL PAIN
     Route: 065

REACTIONS (1)
  - DETACHMENT OF RETINAL PIGMENT EPITHELIUM [None]
